FAERS Safety Report 4943943-2 (Version None)
Quarter: 2006Q1

REPORT INFORMATION
  Report Type: 
  Country: None (occurrence: None)
  Receive Date: 20060313
  Receipt Date: 20060313
  Transmission Date: 20060701
  Serious: Yes (Other)
  Sender: FDA-Public Use
  Company Number: None

PATIENT
  Sex: Female
  Weight: 65.7716 kg

DRUGS (1)
  1. CHLORHEXIDINE GLUCONATE [Suspect]
     Dosage: 1/2 OUNCE  TWICE DAILY  PO
     Route: 048
     Dates: start: 20060309, end: 20060311

REACTIONS (8)
  - DENTAL OPERATION [None]
  - HEADACHE [None]
  - POST PROCEDURAL COMPLICATION [None]
  - PRURITUS [None]
  - PYREXIA [None]
  - SWELLING [None]
  - SWOLLEN TONGUE [None]
  - URTICARIA [None]
